APPROVED DRUG PRODUCT: GANCICLOVIR SODIUM
Active Ingredient: GANCICLOVIR SODIUM
Strength: EQ 500MG BASE/VIAL
Dosage Form/Route: INJECTABLE;INJECTION
Application: A204950 | Product #001 | TE Code: AP
Applicant: PH HEALTH LTD
Approved: Dec 6, 2016 | RLD: No | RS: No | Type: RX